FAERS Safety Report 13961740 (Version 1)
Quarter: 2017Q3

REPORT INFORMATION
  Report Type: Report from Study
  Country: AU (occurrence: AU)
  Receive Date: 20170912
  Receipt Date: 20170912
  Transmission Date: 20171128
  Serious: Yes (Life-Threatening, Hospitalization)
  Sender: FDA-Public Use
  Company Number: AU-MYLANLABS-2017M1046188

PATIENT
  Age: 63 Year
  Sex: Female

DRUGS (3)
  1. VALPROIC ACID. [Suspect]
     Active Substance: VALPROIC ACID
     Indication: PRODUCT USED FOR UNKNOWN INDICATION
     Dosage: 750 MG, UNK
     Route: 048
  2. CLOZAPINE. [Suspect]
     Active Substance: CLOZAPINE
     Indication: SCHIZOPHRENIA
     Dosage: 550 MG, UNK
     Route: 048
     Dates: start: 20030306, end: 20170714
  3. CLOZAPINE. [Suspect]
     Active Substance: CLOZAPINE
     Dosage: UNK
     Route: 048
     Dates: start: 20170720

REACTIONS (4)
  - Antipsychotic drug level increased [Unknown]
  - Refusal of treatment by patient [Recovered/Resolved]
  - Pneumonia [Recovered/Resolved]
  - Hospitalisation [Unknown]

NARRATIVE: CASE EVENT DATE: 201707
